FAERS Safety Report 18253096 (Version 3)
Quarter: 2020Q3

REPORT INFORMATION
  Report Type: Spontaneous
  Country: GB (occurrence: GB)
  Receive Date: 20200910
  Receipt Date: 20200924
  Transmission Date: 20201103
  Serious: Yes (Other)
  Sender: FDA-Public Use
  Company Number: GB-MYLANLABS-2020M1077651

PATIENT

DRUGS (1)
  1. LAMOTRIGINE. [Suspect]
     Active Substance: LAMOTRIGINE
     Indication: BIPOLAR DISORDER
     Dosage: 25 MILLIGRAM
     Route: 065

REACTIONS (8)
  - Medication error [Unknown]
  - Product packaging quantity issue [Unknown]
  - Fatigue [Unknown]
  - Product dispensing error [Unknown]
  - Overdose [Unknown]
  - Headache [Not Recovered/Not Resolved]
  - Accidental overdose [Unknown]
  - Somnolence [Unknown]
